FAERS Safety Report 7315376 (Version 2)
Quarter: 2014Q3

REPORT INFORMATION
  Report Type: Spontaneous
  Country: US (occurrence: None)
  Receive Date: 20100217
  Receipt Date: 20140714
  Transmission Date: 20150326
  Serious: Yes (Other)
  Sender: FDA-Public Use
  Company Number: 2010S1000870

PATIENT
  Age: 69 Year
  Sex: Female

DRUGS (1)
  1. PHOSPHO-SODA [Suspect]
     Active Substance: SODIUM PHOSPHATE, DIBASIC\SODIUM PHOSPHATE, MONOBASIC
     Indication: COLONOSCOPY
     Dosage: PO
     Route: 048
     Dates: start: 20071031, end: 20071031

REACTIONS (4)
  - Blood chloride increased [None]
  - Renal disorder [None]
  - Hypertension [None]
  - Blood potassium increased [None]
